FAERS Safety Report 5728591-9 (Version None)
Quarter: 2008Q2

REPORT INFORMATION
  Report Type: 
  Country: None (occurrence: None)
  Receive Date: 20080506
  Receipt Date: 20080421
  Transmission Date: 20081010
  Serious: Yes (Hospitalization, Disabling, Other)
  Sender: FDA-Public Use
  Company Number: 980909-008013306

PATIENT
  Sex: Female

DRUGS (3)
  1. MICONAZOLE NITRATE [Suspect]
     Route: 061
     Dates: start: 19980624, end: 19980625
  2. MICONAZOLE NITRATE [Suspect]
     Indication: TINEA PEDIS
     Route: 061
     Dates: start: 19980624, end: 19980625
  3. UNKNOWN [Concomitant]
     Route: 065

REACTIONS (2)
  - BLISTER [None]
  - HYPERSENSITIVITY [None]
